FAERS Safety Report 4842047-7 (Version None)
Quarter: 2005Q4

REPORT INFORMATION
  Report Type: 
  Country: None (occurrence: None)
  Receive Date: 20051130
  Receipt Date: 20051121
  Transmission Date: 20060501
  Serious: Yes (Congenital Anomaly)
  Sender: FDA-Public Use
  Company Number: ES-JNJFOC-20051101842

PATIENT
  Sex: Female

DRUGS (10)
  1. TOPAMAX [Suspect]
  2. FOLIC ACID [Concomitant]
  3. MULTI-VITAMINS [Concomitant]
  4. MULTI-VITAMINS [Concomitant]
  5. MULTI-VITAMINS [Concomitant]
  6. MULTI-VITAMINS [Concomitant]
  7. MULTI-VITAMINS [Concomitant]
  8. MULTI-VITAMINS [Concomitant]
  9. MULTI-VITAMINS [Concomitant]
  10. MULTI-VITAMINS [Concomitant]

REACTIONS (8)
  - CAESAREAN SECTION [None]
  - CONGENITAL MUSCULOSKELETAL ANOMALY [None]
  - DRUG EXPOSURE DURING PREGNANCY [None]
  - FINGER HYPOPLASIA [None]
  - HIP DYSPLASIA [None]
  - PHALANGEAL AGENESIS [None]
  - PHALANGEAL HYPOPLASIA [None]
  - SYNDACTYLY [None]
